FAERS Safety Report 18895422 (Version 2)
Quarter: 2021Q1

REPORT INFORMATION
  Report Type: Spontaneous
  Country: DK (occurrence: DK)
  Receive Date: 20210216
  Receipt Date: 20210222
  Transmission Date: 20210420
  Serious: Yes (Other)
  Sender: FDA-Public Use
  Company Number: DK-AUROBINDO-AUR-APL-2021-005453

PATIENT
  Age: 71 Year
  Sex: Male

DRUGS (1)
  1. CLARITHROMYCIN AUROBINDO FILM COATED TABLETS 500MG [Suspect]
     Active Substance: CLARITHROMYCIN
     Indication: ATYPICAL PNEUMONIA
     Dosage: 1000 MILLIGRAM, ONCE A DAY
     Route: 048
     Dates: start: 20190926

REACTIONS (12)
  - Ocular hyperaemia [Recovered/Resolved]
  - Paraesthesia oral [Recovered/Resolved]
  - Head discomfort [Not Recovered/Not Resolved]
  - Diplopia [Recovering/Resolving]
  - Speech disorder [Not Recovered/Not Resolved]
  - Swelling of eyelid [Recovered/Resolved]
  - Drooling [Not Recovered/Not Resolved]
  - Dermatochalasis [Recovered/Resolved]
  - Eye pain [Recovered/Resolved]
  - Dyspnoea [Not Recovered/Not Resolved]
  - Dysphagia [Not Recovered/Not Resolved]
  - Myasthenia gravis [Recovered/Resolved]

NARRATIVE: CASE EVENT DATE: 20190926
